FAERS Safety Report 5478593-5 (Version None)
Quarter: 2007Q4

REPORT INFORMATION
  Report Type: 
  Country: None (occurrence: None)
  Receive Date: 20071005
  Receipt Date: 20070928
  Transmission Date: 20080405
  Serious: No
  Sender: FDA-Public Use
  Company Number: ES-ELI_LILLY_AND_COMPANY-ES200710000020

PATIENT
  Sex: Male

DRUGS (1)
  1. CIALIS [Suspect]
     Dosage: UNK, UNKNOWN
     Route: 065

REACTIONS (2)
  - PRURITUS [None]
  - VISUAL DISTURBANCE [None]
